FAERS Safety Report 5663380-5 (Version None)
Quarter: 2008Q1

REPORT INFORMATION
  Report Type: 
  Country: None (occurrence: None)
  Receive Date: 20080313
  Receipt Date: 20080303
  Transmission Date: 20080703
  Serious: Yes (Other)
  Sender: FDA-Public Use
  Company Number: US-WYE-H02602908

PATIENT
  Sex: Male
  Weight: 63.56 kg

DRUGS (1)
  1. BENEFIX [Suspect]
     Indication: FACTOR VIII DEFICIENCY
     Route: 042
     Dates: start: 20080208, end: 20080208

REACTIONS (2)
  - HAEMORRHAGE [None]
  - WRONG DRUG ADMINISTERED [None]
